FAERS Safety Report 19173644 (Version 2)
Quarter: 2021Q2

REPORT INFORMATION
  Report Type: Spontaneous
  Country: CA (occurrence: CA)
  Receive Date: 20210423
  Receipt Date: 20210505
  Transmission Date: 20210717
  Serious: Yes (Hospitalization)
  Sender: FDA-Public Use
  Company Number: CA-GILEAD-2021-0525089

PATIENT
  Age: 61 Year
  Sex: Female
  Weight: 190 kg

DRUGS (10)
  1. MAGNESIUM [Concomitant]
     Active Substance: MAGNESIUM
  2. IRBESARTAN. [Concomitant]
     Active Substance: IRBESARTAN
  3. VENLAFAXINE [Concomitant]
     Active Substance: VENLAFAXINE HYDROCHLORIDE
  4. CLONIDINE. [Concomitant]
     Active Substance: CLONIDINE
  5. LASIX [Concomitant]
     Active Substance: FUROSEMIDE
  6. EPCLUSA [Suspect]
     Active Substance: SOFOSBUVIR\VELPATASVIR
     Indication: HEPATITIS C
     Dosage: 1 DOSAGE FORM, QD
     Route: 065
  7. DAPAGLIFLOZIN. [Concomitant]
     Active Substance: DAPAGLIFLOZIN
  8. BISOPROLOL [Concomitant]
     Active Substance: BISOPROLOL
  9. METHADONE [Concomitant]
     Active Substance: METHADONE HYDROCHLORIDE
  10. RANITIDINE. [Concomitant]
     Active Substance: RANITIDINE

REACTIONS (1)
  - Supraventricular tachycardia [Recovered/Resolved]

NARRATIVE: CASE EVENT DATE: 20210405
